FAERS Safety Report 10437620 (Version 1)
Quarter: 2014Q3

REPORT INFORMATION
  Report Type: Spontaneous
  Country: IN (occurrence: IN)
  Receive Date: 20140908
  Receipt Date: 20140908
  Transmission Date: 20150326
  Serious: Yes (Hospitalization)
  Sender: FDA-Public Use
  Company Number: IN-MYLAN-2014M1003614

PATIENT

DRUGS (4)
  1. AMLODIPINE BESILATE [Suspect]
     Active Substance: AMLODIPINE BESYLATE
     Indication: SUICIDE ATTEMPT
     Dosage: 17 TABLETS OF AMLODIPINE 5MG AND ATENOLOL 50 MG
     Route: 048
  2. ATENOLOL. [Suspect]
     Active Substance: ATENOLOL
     Indication: SUICIDE ATTEMPT
  3. AMLODIPINE BESILATE [Suspect]
     Active Substance: AMLODIPINE BESYLATE
     Indication: OFF LABEL USE
  4. ATENOLOL. [Suspect]
     Active Substance: ATENOLOL
     Indication: OFF LABEL USE

REACTIONS (9)
  - Acute respiratory distress syndrome [Recovered/Resolved]
  - Renal failure acute [Recovered/Resolved]
  - Shock [Recovered/Resolved]
  - Intentional overdose [Recovered/Resolved]
  - Metabolic acidosis [Recovered/Resolved]
  - Hypoxia [None]
  - Hypotension [None]
  - Toxicity to various agents [Recovered/Resolved]
  - Suicide attempt [None]
